FAERS Safety Report 14471833 (Version 1)
Quarter: 2018Q1

REPORT INFORMATION
  Report Type: Other
  Country: SI (occurrence: SI)
  Receive Date: 20180131
  Receipt Date: 20180131
  Transmission Date: 20180509
  Serious: Yes (Other)
  Sender: FDA-Public Use
  Company Number: SI-VALIDUS PHARMACEUTICALS LLC-SI-2018VAL000198

PATIENT
  Age: 54 Year
  Sex: Male

DRUGS (6)
  1. FUROSEMIDE. [Suspect]
     Active Substance: FUROSEMIDE
     Indication: PRODUCT USED FOR UNKNOWN INDICATION
     Dosage: 1 DF, UNK
     Route: 065
  2. FUROSEMIDE. [Suspect]
     Active Substance: FUROSEMIDE
     Dosage: 0.5 DF, UNK
     Route: 065
  3. BISOPROLOL [Suspect]
     Active Substance: BISOPROLOL
     Indication: PRODUCT USED FOR UNKNOWN INDICATION
     Dosage: UNK
     Route: 065
  4. ROSUVASTATIN. [Suspect]
     Active Substance: ROSUVASTATIN
     Indication: PRODUCT USED FOR UNKNOWN INDICATION
     Dosage: UNK
     Route: 065
  5. RAMIPRIL. [Suspect]
     Active Substance: RAMIPRIL
     Indication: PRODUCT USED FOR UNKNOWN INDICATION
     Dosage: UNK
     Route: 048
  6. ASPIRIN                            /00002701/ [Suspect]
     Active Substance: ASPIRIN
     Indication: PRODUCT USED FOR UNKNOWN INDICATION
     Dosage: UNK
     Route: 065

REACTIONS (7)
  - Dizziness [Recovering/Resolving]
  - Choking [Unknown]
  - General physical health deterioration [Recovered/Resolved]
  - Depression [Unknown]
  - Dyspnoea [Recovered/Resolved]
  - Fatigue [Recovering/Resolving]
  - Cough [Recovered/Resolved]
